FAERS Safety Report 12366459 (Version 2)
Quarter: 2016Q2

REPORT INFORMATION
  Report Type: Report from Study
  Country: US (occurrence: US)
  Receive Date: 20160513
  Receipt Date: 20160609
  Transmission Date: 20160815
  Serious: Yes (Hospitalization, Other)
  Sender: FDA-Public Use
  Company Number: US-GILEAD-2016-0207810

PATIENT
  Age: 81 Year
  Sex: Female
  Weight: 80.2 kg

DRUGS (25)
  1. AMBRISENTAN [Suspect]
     Active Substance: AMBRISENTAN
     Indication: PRODUCT USED FOR UNKNOWN INDICATION
     Dosage: 5 MG, QD
     Route: 065
     Dates: start: 20160324, end: 20160405
  2. AMBRISENTAN [Suspect]
     Active Substance: AMBRISENTAN
     Dosage: 5 MG, QD
     Route: 065
     Dates: start: 20160408
  3. DURAGESIC [Concomitant]
     Active Substance: FENTANYL
  4. COLACE [Concomitant]
     Active Substance: DOCUSATE SODIUM
  5. DEMADEX [Concomitant]
     Active Substance: TORSEMIDE
  6. TYLENOL EXTRA STRENGTH [Concomitant]
     Active Substance: ACETAMINOPHEN
  7. VENTOLIN [Concomitant]
     Active Substance: ALBUTEROL SULFATE
  8. LEXAPRO [Concomitant]
     Active Substance: ESCITALOPRAM OXALATE
  9. BUMEX [Concomitant]
     Active Substance: BUMETANIDE
  10. PLAVIX [Concomitant]
     Active Substance: CLOPIDOGREL BISULFATE
  11. LISINOPRIL. [Concomitant]
     Active Substance: LISINOPRIL
  12. REVATIO [Concomitant]
     Active Substance: SILDENAFIL CITRATE
  13. K-DUR [Concomitant]
     Active Substance: POTASSIUM CHLORIDE
  14. CRESTOR [Concomitant]
     Active Substance: ROSUVASTATIN CALCIUM
  15. NORMODYNE [Concomitant]
     Active Substance: LABETALOL HYDROCHLORIDE
  16. APRESOLINE HYDROCHLORIDE [Concomitant]
     Active Substance: HYDRALAZINE HYDROCHLORIDE
  17. LINAGLIPTIN [Concomitant]
     Active Substance: LINAGLIPTIN
  18. RESTORIL [Concomitant]
     Active Substance: TEMAZEPAM
  19. ZAROXOLYN [Concomitant]
     Active Substance: METOLAZONE
  20. VOLTAREN [Concomitant]
     Active Substance: DICLOFENAC SODIUM
  21. FLONASE                            /00908302/ [Concomitant]
     Active Substance: MOMETASONE FUROATE
  22. NEURONTIN [Concomitant]
     Active Substance: GABAPENTIN
  23. GLUCOPHAGE [Concomitant]
     Active Substance: METFORMIN HYDROCHLORIDE
  24. PROCARDIA [Concomitant]
     Active Substance: NIFEDIPINE
  25. MIRALAX [Concomitant]
     Active Substance: POLYETHYLENE GLYCOL 3350

REACTIONS (6)
  - Dyspnoea [Recovered/Resolved]
  - Weight increased [Unknown]
  - Pulmonary oedema [Recovered/Resolved]
  - Dyspnoea [Recovered/Resolved]
  - Pulmonary oedema [Recovered/Resolved]
  - Pulmonary arterial pressure decreased [Unknown]

NARRATIVE: CASE EVENT DATE: 20160405
